FAERS Safety Report 5209944-4 (Version None)
Quarter: 2006Q4

REPORT INFORMATION
  Report Type: 
  Country: None (occurrence: None)
  Receive Date: 20061128
  Receipt Date: 20060522
  Transmission Date: 20070319
  Serious: Yes (Other)
  Sender: FDA-Public Use
  Company Number: 2006066894

PATIENT
  Age: 66 Year
  Sex: Male
  Weight: 86.1834 kg

DRUGS (14)
  1. TIKOSYN [Suspect]
     Indication: ATRIAL FLUTTER
     Dosage: 1000 MCG (500 MCG, BID INTERVAL: EVERY DAY), ORAL
     Route: 048
     Dates: start: 20030101
  2. BYETTA [Suspect]
     Indication: GLUCOSE TOLERANCE IMPAIRED
     Dosage: (INTERVAL: EVERY DAY)
     Dates: start: 20060501
  3. TOPROL-XL [Concomitant]
  4. MICARDIS [Concomitant]
  5. MAVIK [Concomitant]
  6. NORVASC [Concomitant]
  7. PROSCAR [Concomitant]
  8. ZOCOR [Concomitant]
  9. ZETIA [Concomitant]
  10. ALDACTONE [Concomitant]
  11. LASIX [Concomitant]
  12. ASPIRIN [Concomitant]
  13. POTASSIUM (POTASSIUM) [Concomitant]
  14. COENZYME Q10 [Concomitant]

REACTIONS (3)
  - ARRHYTHMIA [None]
  - DRUG INTERACTION [None]
  - GLUCOSE TOLERANCE IMPAIRED [None]
